FAERS Safety Report 8790398 (Version 1)
Quarter: 2012Q4

REPORT INFORMATION
  Report Type: Report from Study
  Country: CA (occurrence: CA)
  Receive Date: 20120917
  Receipt Date: 20120917
  Transmission Date: 20130627
  Serious: Yes (Other)
  Sender: FDA-Public Use
  Company Number: CA-JNJFOC-20120903145

PATIENT
  Age: 32 Year
  Sex: Female
  Weight: 102 kg

DRUGS (9)
  1. REMICADE [Suspect]
     Indication: CROHN^S DISEASE
     Route: 042
     Dates: start: 20120906
  2. REMICADE [Suspect]
     Indication: CROHN^S DISEASE
     Route: 042
     Dates: start: 200901
  3. IMURAN [Concomitant]
     Dosage: 4yrs
     Route: 065
  4. NEXIUM [Concomitant]
     Dosage: 3-4 yrs
     Route: 065
  5. CYMBALTA [Concomitant]
     Dosage: 2yrs
     Route: 065
  6. OXYNEO [Concomitant]
     Route: 065
  7. PERCOCET [Concomitant]
     Route: 065
  8. METFORMIN [Concomitant]
     Dosage: 3 years
     Route: 065
  9. TECTA [Concomitant]
     Dosage: 6-8 months
     Route: 065

REACTIONS (6)
  - Infusion related reaction [Recovering/Resolving]
  - Tremor [Recovering/Resolving]
  - Chest discomfort [Recovering/Resolving]
  - Blood pressure increased [Recovering/Resolving]
  - Peripheral coldness [Recovering/Resolving]
  - Cough [Recovering/Resolving]
